FAERS Safety Report 22265635 (Version 1)
Quarter: 2023Q2

REPORT INFORMATION
  Report Type: Spontaneous
  Country: US (occurrence: US)
  Receive Date: 20230428
  Receipt Date: 20230428
  Transmission Date: 20230721
  Serious: Yes (Hospitalization, Other)
  Sender: FDA-Public Use
  Company Number: US-JNJFOC-20230441867

PATIENT
  Age: 80 Year
  Sex: Male
  Weight: 69 kg

DRUGS (16)
  1. DARZALEX [Suspect]
     Active Substance: DARATUMUMAB
     Indication: Plasma cell myeloma
     Dosage: FIRST REGIMEN
     Route: 058
     Dates: start: 20230220, end: 20230302
  2. DARZALEX [Suspect]
     Active Substance: DARATUMUMAB
     Dosage: SECOND REGIMEN
     Route: 058
     Dates: start: 20230323, end: 20230406
  3. POMALIDOMIDE [Suspect]
     Active Substance: POMALIDOMIDE
     Indication: Plasma cell myeloma
     Dosage: FIRST REGIMEN
     Route: 048
     Dates: start: 20230220, end: 20230308
  4. POMALIDOMIDE [Suspect]
     Active Substance: POMALIDOMIDE
     Dosage: SECOND REGIMEN
     Route: 048
     Dates: start: 20230323, end: 20230406
  5. DEXAMETHASONE [Suspect]
     Active Substance: DEXAMETHASONE
     Indication: Plasma cell myeloma
     Dosage: FIRST REGIMEN
     Route: 048
     Dates: start: 20230220, end: 20230302
  6. DEXAMETHASONE [Suspect]
     Active Substance: DEXAMETHASONE
     Dosage: SECOND REGIMEN
     Route: 048
     Dates: start: 20230323, end: 20230406
  7. ACETAMINOPHEN [Concomitant]
     Active Substance: ACETAMINOPHEN
     Indication: Plasma cell myeloma
     Route: 048
     Dates: start: 20230406, end: 20230406
  8. PENIRAMIN [Concomitant]
     Indication: Plasma cell myeloma
     Route: 048
     Dates: start: 20230406, end: 20230406
  9. LEVOFLOXACIN [Concomitant]
     Active Substance: LEVOFLOXACIN
     Indication: Infection prophylaxis
     Route: 048
     Dates: start: 20230220
  10. THIOCTIC ACID TROMETHAMINE [Concomitant]
     Active Substance: THIOCTIC ACID TROMETHAMINE
     Indication: Diabetes mellitus
     Route: 048
     Dates: start: 2013
  11. ACYCLOVIR [Concomitant]
     Active Substance: ACYCLOVIR
     Indication: Prophylaxis
     Route: 048
     Dates: start: 20230220
  12. MAGNESIUM OXIDE [Concomitant]
     Active Substance: MAGNESIUM OXIDE
     Indication: Constipation
     Route: 048
     Dates: start: 20220818
  13. NEPHRIS [Concomitant]
     Indication: Nephropathy
     Route: 048
     Dates: start: 2013
  14. DICHLOZID [Concomitant]
     Indication: Nephropathy
     Route: 048
     Dates: start: 2013
  15. XIGDUO XR [Concomitant]
     Active Substance: DAPAGLIFLOZIN PROPANEDIOL\METFORMIN HYDROCHLORIDE
     Indication: Diabetes mellitus
     Route: 048
     Dates: start: 2013
  16. GLICLAZIDE [Concomitant]
     Active Substance: GLICLAZIDE
     Indication: Diabetes mellitus
     Route: 048
     Dates: start: 2013

REACTIONS (2)
  - Meningoencephalitis bacterial [Not Recovered/Not Resolved]
  - Febrile neutropenia [Not Recovered/Not Resolved]

NARRATIVE: CASE EVENT DATE: 20230408
